FAERS Safety Report 6222711-8 (Version None)
Quarter: 2009Q2

REPORT INFORMATION
  Report Type: 
  Country: None (occurrence: None)
  Receive Date: 20090609
  Receipt Date: 20090609
  Transmission Date: 20091009
  Serious: Yes (Life-Threatening)
  Sender: FDA-Public Use
  Company Number: None

PATIENT
  Age: 74 Year
  Sex: Female
  Weight: 78.9259 kg

DRUGS (1)
  1. LIDOCAINE AND EPINEPHRINE [Suspect]
     Indication: TOOTH REPAIR
     Dosage: THREE INJECTION IN INNER GUMS ONE TIME
     Dates: start: 20090603, end: 20090603

REACTIONS (2)
  - PALPITATIONS [None]
  - TREMOR [None]
